FAERS Safety Report 6284356-3 (Version None)
Quarter: 2009Q3

REPORT INFORMATION
  Report Type: 
  Country: None (occurrence: None)
  Receive Date: 20090722
  Receipt Date: 20090710
  Transmission Date: 20100115
  Serious: Yes (Other)
  Sender: FDA-Public Use
  Company Number: 2009-02834

PATIENT
  Age: 66 Year
  Sex: Male

DRUGS (2)
  1. VELCADE [Suspect]
     Indication: MULTIPLE MYELOMA
     Dosage: 1.3 MG/M2, INTRAVENOUS
     Route: 042
  2. DEXAMETHASONE [Concomitant]

REACTIONS (1)
  - NEOPLASM PROGRESSION [None]
